FAERS Safety Report 4905938-4 (Version None)
Quarter: 2006Q1

REPORT INFORMATION
  Report Type: 
  Country: None (occurrence: None)
  Receive Date: 20060206
  Receipt Date: 20060126
  Transmission Date: 20060701
  Serious: Yes (Other)
  Sender: FDA-Public Use
  Company Number: 2006013003

PATIENT
  Sex: Male
  Weight: 7.312 kg

DRUGS (5)
  1. ACTIFED [Suspect]
     Indication: NASOPHARYNGITIS
     Dosage: ORAL
     Route: 048
  2. DRUG, UNSPECIFIED (DRUG, UNSPECIFIED) [Suspect]
     Indication: NASOPHARYNGITIS
  3. HYDROCORTISONE [Concomitant]
  4. PENTAERYTHRITOL TETRANITRATE [Concomitant]
  5. CYANOCOBALAMIN [Concomitant]

REACTIONS (2)
  - FEELING DRUNK [None]
  - HALLUCINATION [None]
